FAERS Safety Report 15472661 (Version 5)
Quarter: 2018Q4

REPORT INFORMATION
  Report Type: Spontaneous
  Country: US (occurrence: US)
  Receive Date: 20181008
  Receipt Date: 20181226
  Transmission Date: 20190205
  Serious: Yes (Hospitalization)
  Sender: FDA-Public Use
  Company Number: US-AMGEN INC.-USASP2018138296

PATIENT
  Age: 54 Year
  Sex: Female
  Weight: 71.66 kg

DRUGS (14)
  1. CHOLECALCIFEROL [Concomitant]
     Active Substance: CHOLECALCIFEROL
     Dosage: 1000 UNIT, QD
     Route: 048
  2. CALCIUM +D3 [Concomitant]
     Active Substance: CALCIUM\CHOLECALCIFEROL
     Dosage: UNK UNK, QD (400/500)
     Route: 048
     Dates: start: 20151113
  3. ALENDRONATE [Concomitant]
     Active Substance: ALENDRONATE SODIUM
     Indication: OSTEOPOROSIS
     Dosage: UNK
     Route: 048
  4. MAGNESIUM OXIDE. [Concomitant]
     Active Substance: MAGNESIUM OXIDE
     Dosage: 400 MG, QD (240 MG OF ELEMENTAL MAGNESIUM)
  5. BOTOX [Concomitant]
     Active Substance: ONABOTULINUMTOXINA
     Indication: MIGRAINE
     Dosage: 200 UNIT, Q3MO
     Route: 030
     Dates: start: 20171016
  6. LOSARTAN POTASSIUM. [Concomitant]
     Active Substance: LOSARTAN POTASSIUM
     Dosage: 25 MG, BID
     Dates: start: 20180530
  7. CALCIUM CITRATE [Concomitant]
     Active Substance: CALCIUM CITRATE
     Dosage: UNK UNK, QD
  8. NAPROXEN SODIUM. [Concomitant]
     Active Substance: NAPROXEN SODIUM
     Dosage: 550 MG, AS NECESSARY
     Route: 048
  9. RECLAST [Concomitant]
     Active Substance: ZOLEDRONIC ACID
     Indication: OSTEOPOROSIS
     Dosage: 5 MG/ 100 ML
     Route: 042
  10. OMEPRAZOLE. [Concomitant]
     Active Substance: OMEPRAZOLE
     Indication: GASTROOESOPHAGEAL REFLUX DISEASE
     Dosage: 40 MG, QD
     Route: 048
     Dates: start: 20180705
  11. KETOROLAC [Concomitant]
     Active Substance: KETOROLAC\KETOROLAC TROMETHAMINE
     Dosage: 10 MG, UNK (EVERY 8 HOURS)
     Route: 048
     Dates: start: 20180731
  12. AIMOVIG [Suspect]
     Active Substance: ERENUMAB-AOOE
     Indication: MIGRAINE PROPHYLAXIS
     Dosage: 70 MG, QMO
     Route: 058
     Dates: start: 201808
  13. ASPIRIN EC [Concomitant]
     Active Substance: ASPIRIN
     Dosage: 81 MG, QD
     Route: 048
     Dates: start: 20180902
  14. RIBOFLAVIN [Concomitant]
     Active Substance: RIBOFLAVIN
     Dosage: 400 MG, QD
     Route: 048

REACTIONS (7)
  - Cold sweat [Recovered/Resolved]
  - Dizziness [Unknown]
  - Hot flush [Recovered/Resolved]
  - Chest pain [Recovered/Resolved]
  - Low density lipoprotein increased [Unknown]
  - Dyspnoea [Recovered/Resolved]
  - Nausea [Recovered/Resolved]

NARRATIVE: CASE EVENT DATE: 2018
